FAERS Safety Report 6181026-7 (Version None)
Quarter: 2009Q2

REPORT INFORMATION
  Report Type: 
  Country: None (occurrence: None)
  Receive Date: 20090506
  Receipt Date: 20090427
  Transmission Date: 20091009
  Serious: Yes (Death, Life-Threatening)
  Sender: FDA-Public Use
  Company Number: CH-ELI_LILLY_AND_COMPANY-CH200904006396

PATIENT
  Age: 47 Year
  Sex: Female

DRUGS (5)
  1. ZYPREXA [Suspect]
     Dosage: 20 MG, DAILY (1/D)
     Route: 048
     Dates: start: 20090226
  2. LORAZEPAM [Concomitant]
     Dosage: 5.5 MG, DAILY (1/D)
     Route: 048
     Dates: start: 20090226, end: 20090228
  3. LORAZEPAM [Concomitant]
     Dosage: 2.5 MG, DAILY (1/D)
     Route: 048
     Dates: start: 20090301
  4. HALDOL [Concomitant]
     Dosage: 10 MG, DAILY (1/D)
     Route: 048
     Dates: start: 20090303
  5. AKINETON /00079501/ [Concomitant]
     Dosage: 4 MG, DAILY (1/D)
     Route: 048
     Dates: start: 20090306

REACTIONS (1)
  - COMPLETED SUICIDE [None]
